FAERS Safety Report 5406663-6 (Version None)
Quarter: 2007Q3

REPORT INFORMATION
  Report Type: 
  Country: None (occurrence: None)
  Receive Date: 20070806
  Receipt Date: 20070725
  Transmission Date: 20080115
  Serious: Yes (Other)
  Sender: FDA-Public Use
  Company Number: US-PFIZER INC-2007063992

PATIENT
  Sex: Male
  Weight: 93.181 kg

DRUGS (1)
  1. CHANTIX [Suspect]
     Indication: SMOKING CESSATION THERAPY

REACTIONS (12)
  - ABNORMAL SENSATION IN EYE [None]
  - ANXIETY [None]
  - DISORIENTATION [None]
  - DISTURBANCE IN ATTENTION [None]
  - DYSPNOEA [None]
  - EAR PRURITUS [None]
  - EYE MOVEMENT DISORDER [None]
  - HEADACHE [None]
  - HYPERSENSITIVITY [None]
  - NERVOUSNESS [None]
  - SKIN BURNING SENSATION [None]
  - TENSION HEADACHE [None]
